FAERS Safety Report 9422455 (Version 1)
Quarter: 2013Q3

REPORT INFORMATION
  Report Type: Spontaneous
  Country: US (occurrence: US)
  Receive Date: 20130726
  Receipt Date: 20130726
  Transmission Date: 20140515
  Serious: Yes (Hospitalization, Other)
  Sender: FDA-Public Use
  Company Number: US-JNJFOC-20130603590

PATIENT
  Age: 65 Year
  Sex: Female

DRUGS (13)
  1. XARELTO [Suspect]
     Indication: PULMONARY EMBOLISM
     Route: 048
     Dates: start: 20130405, end: 20130420
  2. XARELTO [Suspect]
     Indication: DEEP VEIN THROMBOSIS
     Route: 048
     Dates: start: 20130405, end: 20130420
  3. CELEXA [Concomitant]
     Route: 065
  4. KLOR-CON [Concomitant]
     Route: 065
  5. WARFARIN [Concomitant]
     Indication: DEEP VEIN THROMBOSIS
     Route: 065
  6. WARFARIN [Concomitant]
     Indication: DEEP VEIN THROMBOSIS
     Route: 065
     Dates: start: 20130323, end: 20130404
  7. TORASEMIDE [Concomitant]
     Dosage: 1/2 TABLET TWICE A DAY
     Route: 065
  8. ALDACTONE [Concomitant]
     Route: 065
  9. ZYRTEC [Concomitant]
     Route: 065
  10. NORCO [Concomitant]
     Indication: PAIN
     Dosage: 10-325 MG 1 TABLET AS NEEDED
     Route: 065
  11. REMERON [Concomitant]
     Dosage: ONE AND HALF TABLET AT NIGHT ONCE AT NIGHT
     Route: 065
  12. CELEXA [Concomitant]
     Route: 065
  13. VITAMIN D [Concomitant]
     Route: 065

REACTIONS (3)
  - Pulmonary embolism [Recovering/Resolving]
  - Occult blood positive [Unknown]
  - Drug ineffective [Unknown]
